FAERS Safety Report 5867764-1 (Version None)
Quarter: 2008Q3

REPORT INFORMATION
  Report Type: 
  Country: None (occurrence: None)
  Receive Date: 20080902
  Receipt Date: 20080711
  Transmission Date: 20090109
  Serious: Yes (Other)
  Sender: FDA-Public Use
  Company Number: US-PURDUE-USA_2008_0034172

PATIENT
  Age: 42 Year
  Sex: Female
  Weight: 91 kg

DRUGS (2)
  1. OXYCONTIN [Suspect]
     Indication: CARPAL TUNNEL SYNDROME
     Dates: start: 20000510, end: 20011127
  2. ADIPEX-P [Concomitant]
     Indication: WEIGHT DECREASED

REACTIONS (3)
  - DRUG DEPENDENCE [None]
  - EUPHORIC MOOD [None]
  - SUICIDAL IDEATION [None]
